FAERS Safety Report 23701427 (Version 1)
Quarter: 2024Q2

REPORT INFORMATION
  Report Type: Other
  Country: GB (occurrence: GB)
  Receive Date: 20240403
  Receipt Date: 20240403
  Transmission Date: 20240715
  Serious: Yes (Other)
  Sender: FDA-Public Use
  Company Number: None

PATIENT
  Sex: Female

DRUGS (1)
  1. VANCOMYCIN [Suspect]
     Active Substance: VANCOMYCIN
     Indication: Product used for unknown indication
     Dosage: UNK
     Route: 042

REACTIONS (4)
  - Rash erythematous [Recovered/Resolved]
  - Pruritus [Unknown]
  - Incorrect drug administration rate [Unknown]
  - Medication error [Unknown]

NARRATIVE: CASE EVENT DATE: 20240215
